FAERS Safety Report 10538205 (Version 4)
Quarter: 2014Q4

REPORT INFORMATION
  Report Type: Report from Study
  Country: JP (occurrence: JP)
  Receive Date: 20141023
  Receipt Date: 20141202
  Transmission Date: 20150529
  Serious: Yes (Hospitalization)
  Sender: FDA-Public Use
  Company Number: JP-SHIONOGI, INC-2014000921

PATIENT
  Age: 15 Year
  Sex: Male
  Weight: 62 kg

DRUGS (13)
  1. NAFAMOSTAT [Concomitant]
     Active Substance: NAFAMOSTAT
     Indication: DISSEMINATED INTRAVASCULAR COAGULATION
     Dosage: UNK
     Route: 065
     Dates: start: 20140912, end: 20140913
  2. CEFOTAXIME [Concomitant]
     Active Substance: CEFOTAXIME\CEFOTAXIME SODIUM
     Indication: SEPSIS
     Dosage: 1 G, PRN
     Route: 065
     Dates: start: 20140912, end: 20140912
  3. DAIKENCHUTO [Concomitant]
     Active Substance: HERBALS
     Indication: ABDOMINAL DISTENSION
     Dosage: 15 G, QD
     Route: 048
     Dates: start: 20140914
  4. KAYTWO N [Concomitant]
     Active Substance: UNSPECIFIED INGREDIENT
     Indication: DISSEMINATED INTRAVASCULAR COAGULATION
     Dosage: UNK UNK, PRN
     Route: 065
     Dates: start: 20140913, end: 20140914
  5. BOSMIN                             /00003901/ [Concomitant]
     Indication: DYSPNOEA
     Route: 055
     Dates: start: 20140913, end: 20140913
  6. AMIKACIN SULFATE. [Concomitant]
     Active Substance: AMIKACIN SULFATE
     Indication: SEPSIS
     Route: 065
     Dates: start: 20140914, end: 20140920
  7. RESTAMIN                           /00000401/ [Concomitant]
     Indication: URTICARIA
     Dosage: UNK UNK, PRN
     Route: 003
     Dates: start: 20140913, end: 20140913
  8. BISOLVON [Concomitant]
     Active Substance: BROMHEXINE HYDROCHLORIDE
     Indication: SPUTUM RETENTION
     Dosage: UNK UNK, PRN
     Route: 065
     Dates: start: 20140914, end: 20140916
  9. FINIBAX [Suspect]
     Active Substance: DORIPENEM MONOHYDRATE
     Indication: SEPSIS
     Dosage: 500 MG, TID
     Route: 041
     Dates: start: 20140913, end: 20140913
  10. ZOSYN [Suspect]
     Active Substance: PIPERACILLIN SODIUM\TAZOBACTAM SODIUM
     Indication: SEPSIS
     Dosage: 4.5 G, TID
     Route: 065
     Dates: start: 20140913, end: 20140920
  11. BIOFERMIN R [Concomitant]
     Active Substance: BACILLUS SUBTILIS\LACTOBACILLUS ACIDOPHILUS\STREPTOCOCCUS FAECAIS
     Indication: DIARRHOEA
     Dosage: 3 G, QD
     Route: 048
     Dates: start: 20140914
  12. POLARAMINE [Concomitant]
     Active Substance: DEXCHLORPHENIRAMINE MALEATE
     Indication: DYSPNOEA
     Dosage: UNK UNK, PRN
     Route: 065
     Dates: start: 20140913, end: 20140913
  13. SOLU-MEDROL [Concomitant]
     Active Substance: METHYLPREDNISOLONE SODIUM SUCCINATE
     Indication: DYSPNOEA
     Dosage: UNK UNK, PRN
     Route: 065
     Dates: start: 20140913, end: 20140913

REACTIONS (3)
  - Diarrhoea [Recovering/Resolving]
  - Dyspnoea [Recovering/Resolving]
  - Urticaria [Recovering/Resolving]

NARRATIVE: CASE EVENT DATE: 20140913
